FAERS Safety Report 4577145-9 (Version None)
Quarter: 2005Q1

REPORT INFORMATION
  Report Type: 
  Country: None (occurrence: None)
  Receive Date: 20050210
  Receipt Date: 20050202
  Transmission Date: 20050727
  Serious: Yes (Other)
  Sender: FDA-Public Use
  Company Number: DK-ROCHE-394266

PATIENT
  Age: 22 Year
  Sex: Male

DRUGS (1)
  1. LARIAM [Suspect]
     Indication: MALARIA PROPHYLAXIS
     Route: 048
     Dates: start: 20040415, end: 20040515

REACTIONS (3)
  - MENTAL IMPAIRMENT [None]
  - NERVOUSNESS [None]
  - PETIT MAL EPILEPSY [None]
